FAERS Safety Report 4616628-X (Version None)
Quarter: 2005Q1

REPORT INFORMATION
  Report Type: 
  Country: None (occurrence: None)
  Receive Date: 20050318
  Receipt Date: 20050307
  Transmission Date: 20050727
  Serious: Yes (Other)
  Sender: FDA-Public Use
  Company Number: 211955

PATIENT
  Age: 9 Year
  Sex: Female

DRUGS (2)
  1. NUTROPIN [Suspect]
     Indication: GROWTH HORMONE DEFICIENCY
     Dosage: 2 MG, QD, SUBCUTANEOUS
     Route: 058
     Dates: start: 20030901
  2. NUTROPIN [Suspect]
     Indication: GROWTH HORMONE DEFICIENCY
     Dosage: 2 MG, QD, SUBCUTANEOUS
     Route: 058
     Dates: start: 20050209

REACTIONS (1)
  - DIABETES MELLITUS INSULIN-DEPENDENT [None]
